FAERS Safety Report 23329453 (Version 1)
Quarter: 2023Q4

REPORT INFORMATION
  Report Type: Spontaneous
  Country: US (occurrence: US)
  Receive Date: 20231222
  Receipt Date: 20231222
  Transmission Date: 20240109
  Serious: Yes (Death, Hospitalization)
  Sender: FDA-Public Use
  Company Number: US-002147023-NVSC2023US271475

PATIENT
  Age: 80 Year
  Sex: Male

DRUGS (1)
  1. LEQVIO [Suspect]
     Active Substance: INCLISIRAN SODIUM
     Indication: Product used for unknown indication
     Dosage: 284 MG (1ST DOSE, FOLLOWED BY 2ND DOSE THREE MONTHS LATER, FOLLOWED BY SUBSEQUENT DOSES EVERY 6 MOS)
     Route: 058
     Dates: start: 20230802

REACTIONS (2)
  - Death [Fatal]
  - Chest pain [Unknown]

NARRATIVE: CASE EVENT DATE: 20231021
